FAERS Safety Report 5894712-0 (Version None)
Quarter: 2008Q3

REPORT INFORMATION
  Report Type: 
  Country: None (occurrence: None)
  Receive Date: 20080924
  Receipt Date: 20080519
  Transmission Date: 20090109
  Serious: No
  Sender: FDA-Public Use
  Company Number: US-ASTRAZENECA-2008UW10244

PATIENT
  Age: 65 Year
  Sex: Male
  Weight: 95.7 kg

DRUGS (2)
  1. SEROQUEL [Suspect]
     Indication: BIPOLAR DISORDER
     Dosage: 200 MG QAM AND 600 MG QPM
     Route: 048
     Dates: start: 20050101
  2. ELAVIL [Concomitant]

REACTIONS (1)
  - VISUAL IMPAIRMENT [None]
